FAERS Safety Report 6059021-8 (Version None)
Quarter: 2009Q1

REPORT INFORMATION
  Report Type: 
  Country: None (occurrence: None)
  Receive Date: 20090130
  Receipt Date: 20090123
  Transmission Date: 20090719
  Serious: Yes (Other)
  Sender: FDA-Public Use
  Company Number: B0543922A

PATIENT
  Age: 9 Year
  Sex: Male
  Weight: 22.3 kg

DRUGS (5)
  1. SERETIDE [Suspect]
     Indication: ASTHMA
     Route: 055
     Dates: start: 20030301, end: 20070701
  2. FLIXONASE [Suspect]
     Indication: DRUG USE FOR UNKNOWN INDICATION
     Route: 055
     Dates: start: 20060601, end: 20081001
  3. SERETIDE [Suspect]
     Route: 055
     Dates: start: 20070501, end: 20081001
  4. BECONASE AQUA [Suspect]
     Indication: DRUG USE FOR UNKNOWN INDICATION
     Dosage: 2PUFF TWICE PER DAY
     Route: 065
     Dates: start: 20030524, end: 20070801
  5. SINGULAIR [Concomitant]

REACTIONS (3)
  - COUGH [None]
  - GROWTH RETARDATION [None]
  - LUNG INFILTRATION [None]
